FAERS Safety Report 9760527 (Version 1)
Quarter: 2013Q4

REPORT INFORMATION
  Report Type: Spontaneous
  Country: US (occurrence: US)
  Receive Date: 20131216
  Receipt Date: 20131216
  Transmission Date: 20140711
  Serious: No
  Sender: FDA-Public Use
  Company Number: US-BIOGENIDEC-2013BI100306

PATIENT
  Age: 68 Year
  Sex: Female

DRUGS (15)
  1. TECFIDERA [Suspect]
     Indication: MULTIPLE SCLEROSIS
     Route: 048
     Dates: start: 20130909
  2. ALBUTEROL SULFATE [Concomitant]
  3. ALLOPURINOL [Concomitant]
  4. ASPIRIN [Concomitant]
  5. BACLOFEN [Concomitant]
  6. ESTRADIOL [Concomitant]
  7. FISH OIL [Concomitant]
  8. FLUOXETINE HCL [Concomitant]
  9. HYDROCHLOROTHIAZIDE [Concomitant]
  10. LEVOTHYROXINE SODIUM [Concomitant]
  11. LIDODERM [Concomitant]
  12. LISINOPRIL [Concomitant]
  13. NEURONTIN [Concomitant]
  14. OMEPRAZOLE [Concomitant]
  15. ONDANSETRON HCL [Concomitant]

REACTIONS (1)
  - Night sweats [Unknown]
